FAERS Safety Report 12615146 (Version 1)
Quarter: 2016Q3

REPORT INFORMATION
  Report Type: Report from Study
  Country: DE (occurrence: FR)
  Receive Date: 20160802
  Receipt Date: 20160802
  Transmission Date: 20161109
  Serious: Yes (Other)
  Sender: FDA-Public Use
  Company Number: DE-ACTELION-A-NJ2016-140212

PATIENT
  Age: 62 Year
  Sex: Male

DRUGS (1)
  1. VENTAVIS [Suspect]
     Active Substance: ILOPROST
     Indication: PULMONARY ARTERIAL HYPERTENSION
     Dosage: 5 MCG, 6X A DAY
     Route: 055
     Dates: start: 20160406, end: 20160630

REACTIONS (1)
  - Suffocation feeling [Unknown]

NARRATIVE: CASE EVENT DATE: 20160630
